FAERS Safety Report 13381055 (Version 1)
Quarter: 2017Q1

REPORT INFORMATION
  Report Type: Spontaneous
  Country: US (occurrence: US)
  Receive Date: 20170329
  Receipt Date: 20170329
  Transmission Date: 20170429
  Serious: No
  Sender: FDA-Public Use
  Company Number: US-PFIZER INC-2017123548

PATIENT
  Age: 81 Year
  Sex: Female

DRUGS (2)
  1. SODIUM CHLORIDE. [Suspect]
     Active Substance: SODIUM CHLORIDE
     Dosage: 9 ML, UNK
     Route: 008
  2. SODIUM CHLORIDE. [Suspect]
     Active Substance: SODIUM CHLORIDE
     Dosage: 3 ML, UNK
     Route: 008

REACTIONS (5)
  - Hypertension [Unknown]
  - Asthenia [Unknown]
  - Confusional state [Unknown]
  - Dizziness [Unknown]
  - Product use issue [Unknown]
